FAERS Safety Report 18871328 (Version 2)
Quarter: 2022Q3

REPORT INFORMATION
  Report Type: Spontaneous
  Country: US (occurrence: US)
  Receive Date: 20210210
  Receipt Date: 20220903
  Transmission Date: 20221026
  Serious: Yes (Other)
  Sender: FDA-Public Use
  Company Number: US-SA-2021SA036580

PATIENT
  Age: 77 Year
  Sex: Male

DRUGS (1)
  1. ZANTAC [Suspect]
     Active Substance: RANITIDINE HYDROCHLORIDE
     Indication: Abdominal discomfort
     Dosage: UNK
     Dates: start: 199801, end: 201801

REACTIONS (2)
  - Colon cancer [Unknown]
  - Neoplasm malignant [Unknown]

NARRATIVE: CASE EVENT DATE: 20171017
